FAERS Safety Report 7789690-3 (Version None)
Quarter: 2011Q3

REPORT INFORMATION
  Report Type: 
  Country: None (occurrence: None)
  Receive Date: 20110930
  Receipt Date: 20110928
  Transmission Date: 20111222
  Serious: Yes (Death)
  Sender: FDA-Public Use
  Company Number: US-BRISTOL-MYERS SQUIBB COMPANY-15902422

PATIENT
  Age: 58 Year
  Sex: Female

DRUGS (2)
  1. ABILIFY [Suspect]
     Indication: BIPOLAR DISORDER
     Dates: start: 20100101
  2. LAMOTRIGINE [Concomitant]
     Dosage: 1DF=250(UNITS NOT SPECIFIED).

REACTIONS (1)
  - SUDDEN DEATH [None]
